FAERS Safety Report 8035674-X (Version None)
Quarter: 2012Q1

REPORT INFORMATION
  Report Type: 
  Country: None (occurrence: None)
  Receive Date: 20120111
  Receipt Date: 20120104
  Transmission Date: 20120608
  Serious: Yes (Other)
  Sender: FDA-Public Use
  Company Number: JP-JNJFOC-20120101841

PATIENT

DRUGS (1)
  1. INFLIXIMAB, RECOMBINANT [Suspect]
     Indication: CROHN'S DISEASE
     Dosage: AT 0, 2, 6 WEEKS AND THEREAFTER, ONCE EVERY 8 WEEKS AS A MAINTANANCE DOSE
     Route: 042

REACTIONS (1)
  - ANAL STENOSIS [None]
